FAERS Safety Report 23525875 (Version 1)
Quarter: 2024Q1

REPORT INFORMATION
  Report Type: Spontaneous
  Country: CA (occurrence: None)
  Receive Date: 20240215
  Receipt Date: 20240215
  Transmission Date: 20240409
  Serious: Yes (Death)
  Sender: FDA-Public Use
  Company Number: CA-PFIZER INC-202400040701

PATIENT

DRUGS (2)
  1. METHOTREXATE [Suspect]
     Active Substance: METHOTREXATE
     Indication: Diffuse large B-cell lymphoma
     Dosage: CYCLIC
  2. METHOTREXATE [Suspect]
     Active Substance: METHOTREXATE
     Dosage: CYCLIC

REACTIONS (2)
  - Disease progression [Fatal]
  - Off label use [Unknown]
